FAERS Safety Report 11773270 (Version 2)
Quarter: 2015Q4

REPORT INFORMATION
  Report Type: Spontaneous
  Country: BR (occurrence: BR)
  Receive Date: 20151124
  Receipt Date: 20151203
  Transmission Date: 20160304
  Serious: Yes (Other)
  Sender: FDA-Public Use
  Company Number: BR-BAYER-2015-465919

PATIENT
  Age: 10 Year
  Sex: Male
  Weight: 42 kg

DRUGS (1)
  1. ASPIRINA [Suspect]
     Active Substance: ASPIRIN
     Dosage: 200 MG, QD
     Route: 048

REACTIONS (2)
  - Ventricular septal defect repair [Recovered/Resolved]
  - Post procedural pulmonary embolism [Recovered/Resolved]
